FAERS Safety Report 15480275 (Version 1)
Quarter: 2018Q3

REPORT INFORMATION
  Report Type: Spontaneous
  Country: US (occurrence: US)
  Receive Date: 20180928
  Receipt Date: 20180928
  Transmission Date: 20181020
  Serious: No
  Sender: FDA-Public Use
  Company Number: US-AMGEN-USASP2018111409

PATIENT
  Age: 66 Year
  Sex: Female

DRUGS (1)
  1. PROLIA [Suspect]
     Active Substance: DENOSUMAB
     Indication: OSTEOPOROSIS
     Dosage: UNK
     Route: 065
     Dates: start: 2014

REACTIONS (5)
  - Musculoskeletal pain [Recovering/Resolving]
  - Myalgia [Recovered/Resolved]
  - Insomnia [Unknown]
  - Pain in extremity [Recovering/Resolving]
  - Groin pain [Recovering/Resolving]

NARRATIVE: CASE EVENT DATE: 201805
